FAERS Safety Report 20735422 (Version 10)
Quarter: 2025Q2

REPORT INFORMATION
  Report Type: Report from Study
  Country: CA (occurrence: CA)
  Receive Date: 20220421
  Receipt Date: 20250422
  Transmission Date: 20250717
  Serious: Yes (Hospitalization, Other)
  Sender: TAKEDA
  Company Number: CA-TAKEDA-2022TUS012322

PATIENT
  Sex: Female

DRUGS (17)
  1. VEDOLIZUMAB [Suspect]
     Active Substance: VEDOLIZUMAB
     Indication: Colitis ulcerative
  2. VEDOLIZUMAB [Suspect]
     Active Substance: VEDOLIZUMAB
  3. VEDOLIZUMAB [Suspect]
     Active Substance: VEDOLIZUMAB
  4. VEDOLIZUMAB [Suspect]
     Active Substance: VEDOLIZUMAB
  5. VEDOLIZUMAB [Suspect]
     Active Substance: VEDOLIZUMAB
  6. VEDOLIZUMAB [Suspect]
     Active Substance: VEDOLIZUMAB
     Indication: Colitis ulcerative
     Dosage: 108 MILLIGRAM, Q2WEEKS
     Dates: start: 20221202
  7. PANTOPRAZOLE SODIUM [Suspect]
     Active Substance: PANTOPRAZOLE SODIUM
     Indication: Product used for unknown indication
  8. PREDNISONE [Concomitant]
     Active Substance: PREDNISONE
  9. CYMBALTA [Concomitant]
     Active Substance: DULOXETINE HYDROCHLORIDE
  10. IMOVANE [Concomitant]
     Active Substance: ZOPICLONE
  11. FOLIC ACID [Concomitant]
     Active Substance: FOLIC ACID
  12. VITAMIN D [Concomitant]
     Active Substance: VITAMIN D NOS
  13. FERROUS SULFATE [Concomitant]
     Active Substance: FERROUS SULFATE
  14. ARNUITY ELLIPTA [Concomitant]
     Active Substance: FLUTICASONE FUROATE
  15. VENTOLIN [Concomitant]
     Active Substance: ALBUTEROL SULFATE
     Indication: Asthma
  16. HYDROCHLOROTHIAZIDE\TELMISARTAN [Concomitant]
     Active Substance: HYDROCHLOROTHIAZIDE\TELMISARTAN
  17. Salofalk [Concomitant]

REACTIONS (17)
  - Colitis [Unknown]
  - Haematochezia [Unknown]
  - Illness [Unknown]
  - Salmonellosis [Unknown]
  - Rectal haemorrhage [Not Recovered/Not Resolved]
  - Yersinia infection [Not Recovered/Not Resolved]
  - Gastrointestinal infection [Unknown]
  - Faeces soft [Unknown]
  - Frequent bowel movements [Unknown]
  - Diarrhoea [Unknown]
  - Stress at work [Unknown]
  - Mucous stools [Unknown]
  - Defaecation urgency [Unknown]
  - Proctalgia [Unknown]
  - Anal incontinence [Unknown]
  - Malaise [Unknown]
  - Abdominal pain [Unknown]
